FAERS Safety Report 7275812-X (Version None)
Quarter: 2011Q1

REPORT INFORMATION
  Report Type: 
  Country: None (occurrence: None)
  Receive Date: 20110204
  Receipt Date: 20101215
  Transmission Date: 20110831
  Serious: Yes (Disabling, Other)
  Sender: FDA-Public Use
  Company Number: BR-BAYER-201021181LA

PATIENT
  Sex: Male
  Weight: 105 kg

DRUGS (8)
  1. NEXAVAR [Suspect]
     Indication: HEPATIC NEOPLASM MALIGNANT
     Dosage: 400 MG, BID
     Route: 048
     Dates: start: 20100901, end: 20100925
  2. LEVOTHYROXINE SODIUM [Concomitant]
     Indication: THYROID CANCER
     Dosage: 150 MCG, QD
     Route: 048
  3. ALDACTONE [Concomitant]
     Indication: DIURETIC THERAPY
     Dosage: 1 DF, QD
     Route: 048
  4. ESOMEPRAZOLE [Concomitant]
     Indication: PROPHYLAXIS
     Dosage: 1 DF, QD
     Route: 048
  5. LACTULON [Concomitant]
     Indication: LAXATIVE SUPPORTIVE CARE
     Dosage: 20 ML, BID
  6. BROMOPRIDE [Concomitant]
     Indication: GASTROOESOPHAGEAL REFLUX DISEASE
     Dosage: 1 DF, TID
  7. METOPROLOL TARTRATE [Concomitant]
     Indication: BLOOD PRESSURE DIASTOLIC INCREASED
     Dosage: UNK
     Route: 048
  8. LASIX [Concomitant]
     Indication: LAXATIVE SUPPORTIVE CARE
     Dosage: 1 DF, BID

REACTIONS (8)
  - ANAEMIA [None]
  - PAIN [None]
  - ALOPECIA [None]
  - BLOOD ALBUMIN DECREASED [None]
  - ARTHRITIS INFECTIVE [None]
  - ASTHENIA [None]
  - JOINT FLUID DRAINAGE [None]
  - ARTHRITIS [None]
